FAERS Safety Report 4887034-8 (Version None)
Quarter: 2006Q1

REPORT INFORMATION
  Report Type: 
  Country: None (occurrence: None)
  Receive Date: 20060120
  Receipt Date: 20050218
  Transmission Date: 20060701
  Serious: Yes (Hospitalization)
  Sender: FDA-Public Use
  Company Number: US-MERCK-0502USA02874

PATIENT
  Age: 54 Year
  Sex: Female
  Weight: 98 kg

DRUGS (6)
  1. VIOXX [Suspect]
     Indication: BACK PAIN
     Route: 048
     Dates: start: 19990101, end: 20040901
  2. TENORMIN [Concomitant]
     Route: 065
  3. TOPAMAX [Concomitant]
     Route: 065
  4. ULTRAM [Concomitant]
     Route: 065
  5. TAMOXIFEN CITRATE [Concomitant]
     Route: 065
  6. ARIMIDEX [Concomitant]
     Route: 065

REACTIONS (2)
  - MYOCARDIAL INFARCTION [None]
  - ROTATOR CUFF SYNDROME [None]
